FAERS Safety Report 7903798-0 (Version None)
Quarter: 2011Q4

REPORT INFORMATION
  Report Type: 
  Country: None (occurrence: None)
  Receive Date: 20111109
  Receipt Date: 20111031
  Transmission Date: 20120403
  Serious: Yes (Death, Hospitalization)
  Sender: FDA-Public Use
  Company Number: JP-AMGEN-JPNCT2011051560

PATIENT
  Age: 55 Year
  Sex: Male
  Weight: 62 kg

DRUGS (24)
  1. PANITUMUMAB [Suspect]
     Indication: COLORECTAL CANCER
     Dosage: 6 MG/KG, Q2WK
     Route: 041
     Dates: start: 20100823, end: 20110117
  2. PANITUMUMAB [Suspect]
     Dosage: 6 MG/KG, Q2WK
     Route: 041
     Dates: start: 20110215, end: 20110502
  3. FLUOROURACIL [Suspect]
     Indication: COLORECTAL CANCER
     Dosage: 600 MG, Q2WK
     Route: 040
     Dates: start: 20100823, end: 20100906
  4. FLUOROURACIL [Suspect]
     Dosage: 4000 MG, Q2WK
     Route: 041
     Dates: start: 20100823, end: 20100906
  5. PRIMPERAN TAB [Concomitant]
     Dosage: UNK
     Route: 042
  6. ACTOS [Concomitant]
     Dosage: UNK
     Route: 048
  7. ZANTAC [Concomitant]
     Dosage: UNK
     Route: 042
  8. AMARYL [Concomitant]
     Dosage: UNK
     Route: 048
  9. LEVOLEUCOVORIN CALCIUM [Concomitant]
     Dosage: 420 MG, Q2WK
     Route: 041
     Dates: start: 20100921, end: 20110301
  10. LANSOPRAZOLE [Concomitant]
     Dosage: UNK
     Route: 048
  11. OXALIPLATIN [Concomitant]
     Indication: COLORECTAL CANCER
     Dosage: 140 MG, Q2WK
     Route: 041
     Dates: start: 20100823, end: 20100906
  12. IRINOTECAN HCL [Concomitant]
     Indication: COLORECTAL CANCER
     Dosage: 240 MG, Q2WK
     Route: 041
     Dates: start: 20100921, end: 20110301
  13. MOTILIUM [Concomitant]
     Dosage: UNK
     Route: 048
  14. PYDOXAL [Concomitant]
     Dosage: UNK
     Route: 048
  15. METFORMIN HCL [Concomitant]
     Dosage: UNK
     Route: 048
  16. FLUOROURACIL [Suspect]
     Dosage: 4000 MG, Q2WK
     Route: 041
     Dates: start: 20100921, end: 20110301
  17. FLUOROURACIL [Suspect]
     Dosage: 4000 MG, Q2WK
     Route: 013
     Dates: start: 20110315, end: 20110502
  18. CORTICOSTEROIDS [Concomitant]
     Indication: PROPHYLAXIS
     Dosage: UNK
     Route: 065
  19. KYTRIL [Concomitant]
     Dosage: UNK
     Route: 042
  20. EMEND [Concomitant]
     Dosage: UNK
     Route: 048
  21. TALION [Concomitant]
     Dosage: UNK
     Route: 048
  22. FLUOROURACIL [Suspect]
     Dosage: 600 MG, Q2WK
     Route: 040
     Dates: start: 20100921, end: 20110301
  23. LEVOLEUCOVORIN CALCIUM [Concomitant]
     Indication: COLORECTAL CANCER
     Dosage: 420 MG, Q2WK
     Route: 041
     Dates: start: 20100823, end: 20100906
  24. RAMELTEON [Concomitant]
     Dosage: UNK
     Route: 048

REACTIONS (5)
  - VENOUS THROMBOSIS LIMB [None]
  - PULMONARY EMBOLISM [None]
  - RASH [None]
  - SEPSIS [None]
  - COLORECTAL CANCER [None]
